FAERS Safety Report 24319277 (Version 4)
Quarter: 2025Q1

REPORT INFORMATION
  Report Type: Spontaneous
  Country: JP (occurrence: JP)
  Receive Date: 20240914
  Receipt Date: 20250307
  Transmission Date: 20250409
  Serious: Yes (Life-Threatening, Hospitalization, Other)
  Sender: ROCHE
  Company Number: JP-CHUGAI-2024031103

PATIENT
  Age: 56 Year
  Sex: Male
  Weight: 66 kg

DRUGS (5)
  1. ACTEMRA [Suspect]
     Active Substance: TOCILIZUMAB
     Indication: Rheumatoid arthritis
     Dosage: 480 MILLIGRAM, ONCE/5WEEKS
     Route: 042
     Dates: start: 20211021, end: 20240221
  2. ACTEMRA [Suspect]
     Active Substance: TOCILIZUMAB
     Dosage: 480 MILLIGRAM, ONCE/5WEEKS
     Route: 042
     Dates: start: 20240717
  3. PROGRAF [Concomitant]
     Active Substance: TACROLIMUS
     Route: 065
     Dates: start: 20200827, end: 20211118
  4. PREDONINE [Concomitant]
     Active Substance: PREDNISOLONE
     Route: 065
     Dates: start: 20200518, end: 20211118
  5. RHEUMATREX [Concomitant]
     Active Substance: METHOTREXATE SODIUM
     Route: 065
     Dates: start: 20200625, end: 20230329

REACTIONS (12)
  - Infectious pleural effusion [Recovered/Resolved]
  - Lung abscess [Recovering/Resolving]
  - Tooth infection [Recovered/Resolved]
  - Transient ischaemic attack [Recovered/Resolved]
  - Feeling abnormal [Recovered/Resolved]
  - Peripheral coldness [Recovered/Resolved]
  - Pallor [Recovered/Resolved]
  - Nasopharyngitis [Recovered/Resolved]
  - Malaise [Recovered/Resolved]
  - Myalgia [Recovered/Resolved]
  - Hyperuricaemia [Recovered/Resolved]
  - Off label use [Unknown]

NARRATIVE: CASE EVENT DATE: 20211021
